FAERS Safety Report 6130709-3 (Version None)
Quarter: 2009Q1

REPORT INFORMATION
  Report Type: 
  Country: None (occurrence: None)
  Receive Date: 20090325
  Receipt Date: 20090319
  Transmission Date: 20090719
  Serious: Yes (Death, Life-Threatening, Hospitalization, Other)
  Sender: FDA-Public Use
  Company Number: AU-CELGENEUS-008-C5013-08010021

PATIENT
  Sex: Male
  Weight: 97.2 kg

DRUGS (28)
  1. CC-5013 [Suspect]
     Indication: B-CELL LYMPHOMA REFRACTORY
     Route: 048
     Dates: start: 20071128, end: 20071211
  2. DEXAMETHASONE TAB [Suspect]
     Indication: B-CELL LYMPHOMA REFRACTORY
     Dosage: 40 MG
     Route: 065
     Dates: start: 20071128, end: 20071219
  3. DEXAMETHASONE TAB [Suspect]
     Dosage: 4 MG
     Route: 051
     Dates: start: 20080103, end: 20080103
  4. SPIRIVA [Concomitant]
     Indication: ASTHMA
     Dosage: 1 PUFF
     Route: 055
     Dates: start: 19800101, end: 20080108
  5. ZOLOFT [Concomitant]
     Indication: DEPRESSION
     Route: 048
     Dates: end: 20080107
  6. SOMAC [Concomitant]
     Indication: DUODENAL ULCER
     Route: 048
     Dates: start: 19900101, end: 20080107
  7. VITAMIN D [Concomitant]
     Indication: SUPPLEMENTATION THERAPY
     Route: 065
     Dates: end: 20071231
  8. VENTOLIN [Concomitant]
     Indication: ASTHMA
     Route: 065
     Dates: start: 19800101, end: 20071231
  9. SERETIDE [Concomitant]
     Indication: ASTHMA
     Dosage: 1 PUFF
     Route: 055
     Dates: start: 19800101, end: 20080108
  10. ALLOPURINOL [Concomitant]
     Route: 048
     Dates: start: 20071129, end: 20080108
  11. LIPITOR [Concomitant]
     Indication: HYPERCHOLESTEROLAEMIA
     Route: 048
     Dates: start: 20040201, end: 20080107
  12. MICROLAX [Concomitant]
     Indication: CONSTIPATION
     Dosage: 1-2
     Dates: start: 20071202, end: 20071203
  13. LACTULOSE [Concomitant]
     Indication: CONSTIPATION
     Route: 048
     Dates: start: 20071202, end: 20080108
  14. HEPARIN [Concomitant]
     Route: 058
     Dates: start: 20071202, end: 20071204
  15. PARACETAMOL [Concomitant]
     Indication: BACK PAIN
     Route: 048
     Dates: start: 20071202, end: 20071203
  16. PARACETAMOL [Concomitant]
     Indication: SEPSIS
     Route: 048
     Dates: start: 20071211, end: 20071211
  17. PARACETAMOL [Concomitant]
     Route: 051
     Dates: start: 20080101
  18. NULYTELY [Concomitant]
     Indication: CONSTIPATION
     Route: 048
     Dates: start: 20071203, end: 20071214
  19. ACETAMINOPHEN W/ CODEINE [Concomitant]
     Indication: BACK PAIN
     Route: 048
     Dates: start: 20071201, end: 20071201
  20. MAXOLON [Concomitant]
     Indication: NAUSEA
     Route: 051
     Dates: start: 20080103, end: 20080103
  21. CLEXANE [Concomitant]
     Route: 058
     Dates: start: 20071231
  22. CLEXANE [Concomitant]
  23. MORPHINE [Concomitant]
     Indication: PAIN
     Dosage: 2.5-5.0MG
     Route: 058
     Dates: start: 20080103
  24. FUROSEMIDE [Concomitant]
     Indication: OEDEMA
     Route: 051
     Dates: start: 20080101, end: 20080107
  25. MIRALAX [Concomitant]
     Indication: CONSTIPATION
     Route: 054
     Dates: start: 20080102, end: 20080102
  26. INDOCIN [Concomitant]
     Indication: ANTIINFLAMMATORY THERAPY
     Route: 065
     Dates: start: 20080102, end: 20080102
  27. HALOPERIDOL [Concomitant]
     Indication: DRUG USE FOR UNKNOWN INDICATION
     Route: 030
     Dates: start: 20080108
  28. ASPIRIN [Concomitant]
     Route: 048
     Dates: start: 20071205, end: 20080102

REACTIONS (4)
  - DEHYDRATION [None]
  - DISEASE PROGRESSION [None]
  - SEPSIS [None]
  - SOMNOLENCE [None]
